FAERS Safety Report 23439596 (Version 1)
Quarter: 2024Q1

REPORT INFORMATION
  Report Type: Spontaneous
  Country: DE (occurrence: DE)
  Receive Date: 20240124
  Receipt Date: 20240124
  Transmission Date: 20240410
  Serious: Yes (Hospitalization, Other)
  Sender: FDA-Public Use
  Company Number: DE-002147023-NVSC2021DE146041

PATIENT
  Sex: Female
  Weight: 74 kg

DRUGS (13)
  1. ZOLEDRONIC ACID [Suspect]
     Active Substance: ZOLEDRONIC ACID
     Indication: Metastasis
     Dosage: Q4W (EVERY 4 WEEKS)?FORM OF ADMIN: UNKNOWN
     Route: 042
     Dates: start: 20201106, end: 20210621
  2. ANASTROZOLE [Suspect]
     Active Substance: ANASTROZOLE
     Indication: Hormone receptor positive HER2 negative breast cancer
     Dosage: 1 MG, QD?FORM: UNKNOWN?ROUTE: ORAL
     Dates: start: 20200612
  3. ANASTROZOLE [Suspect]
     Active Substance: ANASTROZOLE
     Dosage: 1 MG, QD?FORM: UNKNOWN?ROUTE: ORAL
     Dates: start: 20200612, end: 20230216
  4. KISQALI [Suspect]
     Active Substance: RIBOCICLIB
     Indication: Hormone receptor positive HER2 negative breast cancer
     Dosage: 600 MG QD (DAILY DOSE) (SCHEMA 21 DAYS INTAKE, 7 DAYS PAUSE)?ROUTE: ORAL
     Dates: end: 20211017
  5. KISQALI [Suspect]
     Active Substance: RIBOCICLIB
     Dosage: 600 MG QD (DAILY DOSE) (SCHEMA 21 DAYS INTAKE, 7 DAYS PAUSE)?ROUTE: ORAL
     Dates: start: 20200615, end: 20211003
  6. KISQALI [Suspect]
     Active Substance: RIBOCICLIB
     Dosage: 600 MG QD (DAILY DOSE) (SCHEMA 21 DAYS INTAKE, 7 DAYS PAUSE)?ROUTE: ORAL
     Dates: start: 20211019, end: 20211022
  7. KISQALI [Suspect]
     Active Substance: RIBOCICLIB
     Dosage: 600 MG QD (DAILY DOSE) (SCHEMA 21 DAYS INTAKE, 7 DAYS PAUSE)?ROUTE: ORAL
     Dates: start: 20211024, end: 20230216
  8. XGEVA [Suspect]
     Active Substance: DENOSUMAB
     Indication: Product used for unknown indication
     Dosage: UNK?ROUTE: UNKNOWN
  9. ZOLEDRONIC ACID [Concomitant]
     Active Substance: ZOLEDRONIC ACID
     Indication: Product used for unknown indication
     Dosage: UNK
     Route: 065
     Dates: end: 20210601
  10. METFORMIN [Concomitant]
     Active Substance: METFORMIN HYDROCHLORIDE
     Indication: Product used for unknown indication
     Dosage: UNK
  11. BISOPROLOL [Concomitant]
     Active Substance: BISOPROLOL\BISOPROLOL FUMARATE
     Indication: Product used for unknown indication
     Dosage: UNK
  12. GLIMEPIRIDE [Concomitant]
     Active Substance: GLIMEPIRIDE
     Indication: Product used for unknown indication
     Dosage: FORM: UNKNOWN
  13. AMLODIPINE [Concomitant]
     Active Substance: AMLODIPINE BESYLATE
     Dosage: UNK?ROUTE: UNKNOWN

REACTIONS (5)
  - Dehydration [Recovering/Resolving]
  - Renal impairment [Recovering/Resolving]
  - Renal failure [Recovering/Resolving]
  - Osteonecrosis [Recovering/Resolving]
  - Anaemia [Not Recovered/Not Resolved]

NARRATIVE: CASE EVENT DATE: 20210611
